FAERS Safety Report 25362450 (Version 1)
Quarter: 2025Q2

REPORT INFORMATION
  Report Type: Spontaneous
  Country: US (occurrence: US)
  Receive Date: 20250527
  Receipt Date: 20250527
  Transmission Date: 20250716
  Serious: Yes (Hospitalization)
  Sender: MYLAN
  Company Number: US-MYLANLABS-2025M1042779

PATIENT
  Age: 55 Year
  Sex: Female

DRUGS (4)
  1. HALOPERIDOL DECANOATE [Suspect]
     Active Substance: HALOPERIDOL DECANOATE
     Indication: Schizophrenia
  2. LORAZEPAM [Suspect]
     Active Substance: LORAZEPAM
     Indication: Catatonia
     Dosage: 1 MILLIGRAM, TID, THREE TIMES DAILY
  3. LORAZEPAM [Suspect]
     Active Substance: LORAZEPAM
     Indication: Catatonia
     Dosage: 1 MILLIGRAM, TID, THREE TIMES DAILY
  4. LORAZEPAM [Suspect]
     Active Substance: LORAZEPAM
     Dosage: UP TO 2MG THREE TIMES DAILY , TID

REACTIONS (4)
  - Condition aggravated [Recovering/Resolving]
  - Catatonia [Recovering/Resolving]
  - Drug ineffective [Unknown]
  - Treatment noncompliance [Unknown]
